FAERS Safety Report 9008208 (Version 1)
Quarter: 2012Q4

REPORT INFORMATION
  Report Type: Spontaneous
  Country: AN (occurrence: None)
  Receive Date: 20121227
  Receipt Date: 20121227
  Transmission Date: 20130627
  Serious: Yes (Hospitalization)
  Sender: FDA-Public Use
  Company Number: UTC-026988

PATIENT
  Sex: Male

DRUGS (1)
  1. REMODULIN  (INJECTION FOR INFUSION) (TREPROSTINIL SODIUM) [Suspect]
     Indication: DRUG USE FOR UNKNOWN INDICATION
     Route: 041

REACTIONS (2)
  - Accidental overdose [None]
  - Device malfunction [None]
